FAERS Safety Report 19670994 (Version 1)
Quarter: 2021Q3

REPORT INFORMATION
  Report Type: Spontaneous
  Country: US (occurrence: US)
  Receive Date: 20210806
  Receipt Date: 20210806
  Transmission Date: 20211014
  Serious: No
  Sender: FDA-Public Use
  Company Number: US-PFIZER INC-2019158595

PATIENT
  Age: 49 Year
  Sex: Male

DRUGS (3)
  1. LYRICA [Suspect]
     Active Substance: PREGABALIN
     Dosage: 100 MG, 2X/DAY
  2. LYRICA [Suspect]
     Active Substance: PREGABALIN
     Indication: BACK PAIN
     Dosage: 75 MG, 3X/DAY
     Route: 048
     Dates: start: 20190325
  3. LYRICA [Suspect]
     Active Substance: PREGABALIN
     Indication: HEREDITARY MOTOR AND SENSORY NEUROPATHY
     Dosage: UNK
     Dates: start: 20170616

REACTIONS (1)
  - Illness [Unknown]
